FAERS Safety Report 15575911 (Version 1)
Quarter: 2018Q4

REPORT INFORMATION
  Report Type: Spontaneous
  Country: IT (occurrence: IT)
  Receive Date: 20181101
  Receipt Date: 20181101
  Transmission Date: 20190205
  Serious: Yes (Other)
  Sender: FDA-Public Use
  Company Number: IT-SA-2018SA299719

PATIENT
  Age: 70 Year
  Sex: Male

DRUGS (8)
  1. PLAVIX [Suspect]
     Active Substance: CLOPIDOGREL BISULFATE
     Indication: ISCHAEMIC HEART DISEASE PROPHYLAXIS
     Route: 048
     Dates: start: 20180101, end: 20180905
  2. KANRENOL [Concomitant]
     Active Substance: CANRENOATE POTASSIUM
  3. GOLTOR [Concomitant]
     Dosage: UNK, UNK
     Route: 065
  4. LASIX [Concomitant]
     Active Substance: FUROSEMIDE
  5. ACETYLSALICYLIC ACID [Suspect]
     Active Substance: ASPIRIN
     Indication: THROMBOSIS PROPHYLAXIS
     Route: 048
     Dates: start: 20180101, end: 20180905
  6. RIOPAN [PIROXICAM] [Concomitant]
  7. RANEXA [Concomitant]
     Active Substance: RANOLAZINE
     Dosage: UNK, UNK
  8. CARDURA [Concomitant]
     Active Substance: DOXAZOSIN MESYLATE

REACTIONS (3)
  - Abdominal pain [Recovering/Resolving]
  - Haematuria [Recovering/Resolving]
  - Urinary bladder haemorrhage [Recovering/Resolving]

NARRATIVE: CASE EVENT DATE: 20180905
